FAERS Safety Report 10765929 (Version 1)
Quarter: 2015Q1

REPORT INFORMATION
  Report Type: Spontaneous
  Country: US (occurrence: US)
  Receive Date: 20150205
  Receipt Date: 20150205
  Transmission Date: 20150721
  Serious: Yes (Hospitalization, Other)
  Sender: FDA-Public Use
  Company Number: US-GLAXOSMITHKLINE-US2015GSK014295

PATIENT
  Age: 65 Year
  Sex: Female

DRUGS (9)
  1. FLUTICASONE PROPIONATE. [Suspect]
     Active Substance: FLUTICASONE PROPIONATE
  2. PREDNISONE. [Suspect]
     Active Substance: PREDNISONE
     Dosage: 2.5 MG, UNK
  3. LORAZEPAM. [Suspect]
     Active Substance: LORAZEPAM
  4. PREDNISONE. [Suspect]
     Active Substance: PREDNISONE
     Dosage: 1 UNK, UNK
  5. PREDNISONE. [Suspect]
     Active Substance: PREDNISONE
     Dosage: 10 MG, QD
  6. PREDNISONE. [Suspect]
     Active Substance: PREDNISONE
     Dosage: 7.5 MG, UNK
  7. ALPRAZOLAM. [Suspect]
     Active Substance: ALPRAZOLAM
  8. OLANZAPINE. [Suspect]
     Active Substance: OLANZAPINE
     Dosage: 10 MG, QD
  9. PREDNISONE. [Suspect]
     Active Substance: PREDNISONE
     Dosage: 2.0 MG, QD

REACTIONS (15)
  - Agitation [Recovered/Resolved]
  - Restlessness [Recovered/Resolved]
  - Anxiety [Recovered/Resolved]
  - Slow speech [Recovered/Resolved]
  - Delirium [Recovering/Resolving]
  - Obsessive-compulsive disorder [Recovered/Resolved]
  - Gait disturbance [Recovered/Resolved]
  - Confusional state [Recovered/Resolved]
  - Hyponatraemia [Recovered/Resolved]
  - Pressure of speech [Recovered/Resolved]
  - Dysarthria [Recovered/Resolved]
  - Psychiatric symptom [Recovered/Resolved]
  - Delusion [Recovered/Resolved]
  - Toxicity to various agents [Recovered/Resolved]
  - Hypercapnia [Recovered/Resolved]
